FAERS Safety Report 5591070-6 (Version None)
Quarter: 2008Q1

REPORT INFORMATION
  Report Type: 
  Country: None (occurrence: None)
  Receive Date: 20080115
  Receipt Date: 20080111
  Transmission Date: 20080703
  Serious: Yes (Death, Hospitalization)
  Sender: FDA-Public Use
  Company Number: PHHO2008GB00508

PATIENT
  Age: 66 Year
  Sex: Female

DRUGS (8)
  1. GLEEVEC [Suspect]
     Indication: ADENOCARCINOMA PANCREAS
     Dates: start: 20071211
  2. GEMCITABINE [Suspect]
     Dates: start: 20071211
  3. OXALIPLATIN [Suspect]
  4. TINZAPARIN [Concomitant]
  5. LANSOPRAZOLE [Concomitant]
  6. NOVORAPID [Concomitant]
  7. DEXAMETHASONE TAB [Concomitant]
  8. ANTIEMETICS [Concomitant]

REACTIONS (6)
  - BLOOD CREATININE INCREASED [None]
  - MALIGNANT NEOPLASM PROGRESSION [None]
  - MELAENA [None]
  - RECTAL HAEMORRHAGE [None]
  - RENAL FAILURE [None]
  - THROMBOSIS [None]
